FAERS Safety Report 4443340-2 (Version None)
Quarter: 2004Q3

REPORT INFORMATION
  Report Type: 
  Country: None (occurrence: None)
  Receive Date: 20040728
  Receipt Date: 20040518
  Transmission Date: 20050211
  Serious: No
  Sender: FDA-Public Use
  Company Number: USA040567940

PATIENT
  Age: 55 Year
  Sex: Female
  Weight: 64 kg

DRUGS (4)
  1. STRATTERA [Suspect]
     Indication: ATTENTION DEFICIT/HYPERACTIVITY DISORDER
     Dosage: 40 MG DAY
     Dates: start: 20040514
  2. FLUOXETINE [Concomitant]
  3. KLONOPIN [Concomitant]
  4. TRAZADONE (TRAZODONE) [Concomitant]

REACTIONS (7)
  - ABDOMINAL PAIN LOWER [None]
  - CHILLS [None]
  - FEELING HOT AND COLD [None]
  - HEART RATE INCREASED [None]
  - HOT FLUSH [None]
  - HYPERHIDROSIS [None]
  - TINNITUS [None]
